FAERS Safety Report 7524041-0 (Version None)
Quarter: 2011Q2

REPORT INFORMATION
  Report Type: 
  Country: None (occurrence: None)
  Receive Date: 20110605
  Receipt Date: 20110601
  Transmission Date: 20111010
  Serious: Yes (Hospitalization)
  Sender: FDA-Public Use
  Company Number: US-BRISTOL-MYERS SQUIBB COMPANY-15558182

PATIENT
  Age: 59 Year
  Sex: Female

DRUGS (24)
  1. ATIVAN [Concomitant]
     Dosage: ALSO 0.5MG
     Route: 048
  2. BENZONATATE [Concomitant]
     Indication: COUGH
     Dosage: TID
     Route: 048
  3. GUAIFENESIN [Concomitant]
     Indication: COUGH
     Dosage: Q4H
     Route: 048
  4. TRAMADOL HCL [Concomitant]
  5. LEVOFLOXACIN [Concomitant]
     Route: 048
  6. VANCOMYCIN HCL [Concomitant]
     Route: 042
  7. BENADRYL [Concomitant]
  8. REMERON [Concomitant]
     Dosage: TABS
     Route: 048
  9. AMILORIDE HCL AND HYDROCHLOROTHIAZIDE [Concomitant]
     Dosage: 1DF:1 TAB(5-50MG)
     Route: 048
  10. ATENOLOL [Concomitant]
     Dosage: ALSO 100MG
     Route: 048
  11. CELEXA [Concomitant]
     Dosage: 30DAYS TABS
     Route: 048
  12. IPILIMUMAB [Suspect]
     Indication: MALIGNANT MELANOMA
     Dosage: ALSO 207MG
     Route: 042
     Dates: start: 20101213, end: 20110124
  13. AMILORIDE HCL AND HYDROCHLOROTHIAZIDE [Concomitant]
     Dosage: 1 DF: 5/50 5MG-50MG TABS
     Route: 048
  14. ZANTAC [Concomitant]
  15. LEUKINE [Concomitant]
     Route: 058
  16. PREDNISONE [Concomitant]
     Dosage: QAM ALSO 110MG
     Route: 048
  17. CALCIUM + VITAMIN D [Concomitant]
     Dosage: TABS 1DF=600MG PLUS 400IU
     Route: 048
  18. DECADRON [Concomitant]
     Route: 048
  19. MULTI-VITAMINS [Concomitant]
     Dosage: 1DF=TABS
     Route: 048
  20. MELATONIN [Concomitant]
  21. TRIMETHOPRIM + SULFAMETHOXAZOLE [Concomitant]
     Dosage: 1DF:1 TAB
     Route: 048
  22. CIPROFLOXACIN [Concomitant]
     Dosage: TAKE 2 HOURS BEFORE OR TWO HOURS AFTER DAIRY PRODUCTS
  23. ATENOLOL [Concomitant]
     Route: 048
  24. REMERON [Concomitant]
     Dosage: PRN,AT BEDTIME,30DAYS
     Route: 048

REACTIONS (5)
  - TACHYCARDIA [None]
  - LIPASE INCREASED [None]
  - COLITIS [None]
  - CHEST PAIN [None]
  - HYPOXIA [None]
